FAERS Safety Report 8967843 (Version 1)
Quarter: 2012Q4

REPORT INFORMATION
  Report Type: Spontaneous
  Country: US (occurrence: None)
  Receive Date: 20121213
  Receipt Date: 20121213
  Transmission Date: 20130627
  Serious: Yes (Life-Threatening)
  Sender: FDA-Public Use
  Company Number: None

PATIENT

DRUGS (2)
  1. PROTAMINE [Suspect]
     Indication: OPEN HEART SURGERY
  2. PROTAMINE [Suspect]

REACTIONS (4)
  - Urticaria [None]
  - Rash [None]
  - Fall [None]
  - Hypotension [None]
